FAERS Safety Report 4506058-3 (Version None)
Quarter: 2004Q4

REPORT INFORMATION
  Report Type: 
  Country: None (occurrence: None)
  Receive Date: 20041025
  Receipt Date: 20040512
  Transmission Date: 20050328
  Serious: Yes (Hospitalization)
  Sender: FDA-Public Use
  Company Number: US-JNJFOC-20040502573

PATIENT
  Age: 37 Year
  Sex: Female
  Weight: 63.5036 kg

DRUGS (3)
  1. REMICADE [Suspect]
     Indication: CROHN'S DISEASE
     Dosage: 10 MG/KG INTRAVENOUS
     Route: 042
  2. IMURAN [Concomitant]
  3. COLAZAL (BALSALAZIDE SODIUM) [Concomitant]

REACTIONS (1)
  - CROHN'S DISEASE [None]
